FAERS Safety Report 5821857-3 (Version None)
Quarter: 2008Q3

REPORT INFORMATION
  Report Type: 
  Country: None (occurrence: None)
  Receive Date: 20080722
  Receipt Date: 20080709
  Transmission Date: 20090109
  Serious: No
  Sender: FDA-Public Use
  Company Number: 14712

PATIENT
  Age: 54 Year
  Sex: Female

DRUGS (8)
  1. MORPHINE SULFATE [Suspect]
     Indication: BACK PAIN
     Dosage: 60MG EVERY 8HRS. ORAL
     Route: 048
     Dates: start: 20050101
  2. MSO4 ER [Concomitant]
  3. SYNTHROID [Concomitant]
  4. PREVACID [Concomitant]
  5. KLONOPIN [Concomitant]
  6. MSO4 IR [Concomitant]
  7. NASONEX [Concomitant]
  8. BOTOX INJECTIONS [Concomitant]

REACTIONS (16)
  - BACK PAIN [None]
  - COMA [None]
  - CONDITION AGGRAVATED [None]
  - DERMATITIS DIAPER [None]
  - DRUG WITHDRAWAL SYNDROME [None]
  - DYSARTHRIA [None]
  - FALL [None]
  - FEELING ABNORMAL [None]
  - FURUNCLE [None]
  - HYPOAESTHESIA [None]
  - HYPOVENTILATION [None]
  - INJURY [None]
  - MALAISE [None]
  - PHARMACEUTICAL PRODUCT COMPLAINT [None]
  - SPEECH DISORDER [None]
  - URINARY INCONTINENCE [None]
